FAERS Safety Report 6092160-4 (Version None)
Quarter: 2009Q1

REPORT INFORMATION
  Report Type: 
  Country: None (occurrence: None)
  Receive Date: 20090223
  Receipt Date: 20090223
  Transmission Date: 20090719
  Serious: Yes (Other)
  Sender: FDA-Public Use
  Company Number: None

PATIENT
  Sex: Female

DRUGS (2)
  1. ALBUTEROL SULFATE AUTOHALER [Suspect]
     Indication: ASTHMA
     Dosage: SOLUTION 0.083%
     Dates: start: 20080401
  2. ALBUTEROL SULFATE AUTOHALER [Suspect]

REACTIONS (2)
  - OROPHARYNGEAL PAIN [None]
  - PHARYNGEAL DISORDER [None]
